FAERS Safety Report 11068611 (Version 2)
Quarter: 2015Q3

REPORT INFORMATION
  Report Type: Spontaneous
  Country: US (occurrence: US)
  Receive Date: 20150427
  Receipt Date: 20150812
  Transmission Date: 20151125
  Serious: No
  Sender: FDA-Public Use
  Company Number: US-009507513-1504USA018224

PATIENT
  Age: 15 Year
  Sex: Female
  Weight: 72.11 kg

DRUGS (1)
  1. NEXPLANON [Suspect]
     Active Substance: ETONOGESTREL
     Indication: CONTRACEPTION
     Dosage: 1 ROD/3 YEARS
     Route: 059
     Dates: start: 20150406, end: 20150416

REACTIONS (8)
  - Implant site pain [Recovering/Resolving]
  - Device kink [Recovered/Resolved]
  - Device malfunction [Recovered/Resolved]
  - Device expulsion [Recovered/Resolved]
  - Medical device complication [Recovered/Resolved]
  - Medical device complication [Recovered/Resolved]
  - Device deployment issue [Recovered/Resolved]
  - Implant site infection [Recovering/Resolving]

NARRATIVE: CASE EVENT DATE: 201504
